FAERS Safety Report 5592265-8 (Version None)
Quarter: 2008Q1

REPORT INFORMATION
  Report Type: 
  Country: None (occurrence: None)
  Receive Date: 20080115
  Receipt Date: 20080108
  Transmission Date: 20080703
  Serious: Yes (Hospitalization)
  Sender: FDA-Public Use
  Company Number: US-BOEHRINGER INGELHEIM PHARMACEUTICALS, INC.-2007-BP-26287BP

PATIENT
  Sex: Female

DRUGS (21)
  1. SPIRIVA [Suspect]
     Indication: EMPHYSEMA
     Route: 055
     Dates: start: 20040101
  2. ADVAIR DISKUS 100/50 [Concomitant]
     Indication: EMPHYSEMA
  3. ATROVENT HFA [Concomitant]
     Indication: EMPHYSEMA
  4. OXYGEN [Concomitant]
     Indication: EMPHYSEMA
  5. ACCUPRIL [Concomitant]
  6. ZETIA [Concomitant]
  7. NEXIUM [Concomitant]
  8. THEO-24 [Concomitant]
  9. ATIVAN [Concomitant]
     Route: 048
  10. NEURONTIN [Concomitant]
  11. LASIX [Concomitant]
  12. GENERIC FOR DILTIAZEM CARDIZEM C.D. [Concomitant]
  13. POTASSIUM CHLORIDE [Concomitant]
  14. ALBUTEROL SULFATE [Concomitant]
  15. ASPIRIN [Concomitant]
  16. ALBUTEROL [Concomitant]
  17. PESSARY [Concomitant]
     Indication: BLADDER DISORDER
  18. PREMARIN [Concomitant]
  19. DIGOXIN [Concomitant]
  20. COREG [Concomitant]
  21. COUMADIN [Concomitant]

REACTIONS (3)
  - CARDIAC FAILURE CONGESTIVE [None]
  - DYSPNOEA [None]
  - PULMONARY OEDEMA [None]
